FAERS Safety Report 8438116 (Version 3)
Quarter: 2014Q3

REPORT INFORMATION
  Report Type: Report from Study
  Country: US (occurrence: US)
  Receive Date: 20120302
  Receipt Date: 20140912
  Transmission Date: 20150326
  Serious: Yes (Death)
  Sender: FDA-Public Use
  Company Number: US-MPIJNJ-2012-01293

PATIENT
  Age: 66 Year
  Sex: Male
  Weight: 80.27 kg

DRUGS (2)
  1. VELCADE [Suspect]
     Active Substance: BORTEZOMIB
     Indication: PLASMA CELL MYELOMA
     Dosage: 1 MG/M2, 1/WEEK
     Route: 042
     Dates: start: 20110228, end: 20120108
  2. MELPHALAN [Suspect]
     Active Substance: MELPHALAN
     Indication: PLASMA CELL MYELOMA
     Dosage: 2 MG, QD, 4D WITH START OF EVERY CYCLE
     Route: 048
     Dates: start: 20110228, end: 20120108

REACTIONS (1)
  - Death [Fatal]

NARRATIVE: CASE EVENT DATE: 20120108
